FAERS Safety Report 7231332-X (Version None)
Quarter: 2011Q1

REPORT INFORMATION
  Report Type: 
  Country: None (occurrence: None)
  Receive Date: 20110118
  Receipt Date: 20101126
  Transmission Date: 20110831
  Serious: Yes (Hospitalization)
  Sender: FDA-Public Use
  Company Number: PHHY2010JP72851

PATIENT
  Sex: Female
  Weight: 34 kg

DRUGS (2)
  1. OLMETEC [Concomitant]
     Dosage: 20 MG
     Route: 048
     Dates: end: 20101021
  2. TEGRETOL [Suspect]
     Indication: CONVULSION
     Dosage: 0.2 G, BID
     Route: 048
     Dates: start: 20100823, end: 20101021

REACTIONS (10)
  - RASH [None]
  - ANTICONVULSANT DRUG LEVEL DECREASED [None]
  - DRUG RASH WITH EOSINOPHILIA AND SYSTEMIC SYMPTOMS [None]
  - GENERALISED ERYTHEMA [None]
  - FEELING HOT [None]
  - PYREXIA [None]
  - APHAGIA [None]
  - ERYTHEMA [None]
  - SKIN LESION [None]
  - SWELLING [None]
